FAERS Safety Report 13023014 (Version 1)
Quarter: 2016Q4

REPORT INFORMATION
  Report Type: Spontaneous
  Country: US (occurrence: US)
  Receive Date: 20161213
  Receipt Date: 20161213
  Transmission Date: 20170207
  Serious: No
  Sender: FDA-Public Use
  Company Number: US-LPDUSPRD-20160267

PATIENT
  Age: 36 Year
  Sex: Female

DRUGS (11)
  1. MAGNESIUM OXIDE. [Concomitant]
     Active Substance: MAGNESIUM OXIDE
     Dosage: 1 TAB TWICE DAILY
     Route: 048
  2. SIGNIFOR [Concomitant]
     Active Substance: PASIREOTIDE
     Dosage: 40 MG EVERY 28 DAYS
     Route: 051
  3. PANTOPRAZOLE SODIUM-DELAYED RELEASE [Concomitant]
     Dosage: 1 TABLET DAILY
     Route: 048
  4. LUNESTA [Concomitant]
     Active Substance: ESZOPICLONE
     Dosage: 1 TAB AT BEDTIME, AS NEEDED
     Route: 048
  5. LISINOPRIL. [Concomitant]
     Active Substance: LISINOPRIL
     Dosage: 1 TABLET DAILY
     Route: 048
     Dates: start: 20150506
  6. VENOFER [Suspect]
     Active Substance: IRON SUCROSE
     Dosage: 300MG IN 100ML NS OVER 1 HR
     Route: 042
     Dates: start: 20160324, end: 20160324
  7. FOLIVANE-PLUS [Concomitant]
     Dosage: 1 CAPSULE TWICE DAILY
     Route: 065
  8. ALPRAZOLAM. [Concomitant]
     Active Substance: ALPRAZOLAM
     Dosage: 1 TABLET AT BEDTIME
     Route: 048
  9. PROCHLORPERAZINE MALEATE. [Concomitant]
     Active Substance: PROCHLORPERAZINE MALEATE
     Dosage: 1 TAB, EVERY 6 HRS AS NEEDED
     Route: 048
  10. ONE-A-DAY WOMENS [Concomitant]
     Dosage: 1 TAB DAILY
     Route: 065
  11. SULFAMETHOXAZOLE-TMP DS [Concomitant]
     Active Substance: SULFAMETHOXAZOLE\TRIMETHOPRIM
     Dosage: 1 TAB, TWICE DAILY FOR 21 DAYS
     Route: 065

REACTIONS (3)
  - Pruritus [Recovered/Resolved]
  - Urticaria [Recovered/Resolved]
  - Rash [Recovered/Resolved]

NARRATIVE: CASE EVENT DATE: 20160324
